FAERS Safety Report 14573442 (Version 5)
Quarter: 2021Q2

REPORT INFORMATION
  Report Type: Report from Study
  Country: US (occurrence: US)
  Receive Date: 20180226
  Receipt Date: 20210420
  Transmission Date: 20210716
  Serious: Yes (Hospitalization, Other)
  Sender: FDA-Public Use
  Company Number: US-JAZZ-2017-US-006106

PATIENT
  Sex: Female

DRUGS (28)
  1. GLIPIZIDE. [Suspect]
     Active Substance: GLIPIZIDE
     Indication: PRODUCT USED FOR UNKNOWN INDICATION
  2. METFORMIN HCL [Concomitant]
     Active Substance: METFORMIN HYDROCHLORIDE
  3. NORCO [Concomitant]
     Active Substance: ACETAMINOPHEN\HYDROCODONE BITARTRATE
  4. ADDERALL [Concomitant]
     Active Substance: AMPHETAMINE ASPARTATE\AMPHETAMINE SULFATE\DEXTROAMPHETAMINE SACCHARATE\DEXTROAMPHETAMINE SULFATE
  5. METAGLIP [Concomitant]
     Active Substance: GLIPIZIDE\METFORMIN HYDROCHLORIDE
  6. INSULIN [Suspect]
     Active Substance: INSULIN NOS
     Indication: PRODUCT USED FOR UNKNOWN INDICATION
  7. LEVOTHYROXINE. [Concomitant]
     Active Substance: LEVOTHYROXINE
  8. XYREM [Suspect]
     Active Substance: SODIUM OXYBATE
     Indication: NARCOLEPSY
     Dosage: 2.25 G, BID
     Route: 048
     Dates: start: 200609, end: 200609
  9. XYREM [Suspect]
     Active Substance: SODIUM OXYBATE
     Dosage: DOSE ADJUSTMENT
     Route: 048
     Dates: start: 200609, end: 201505
  10. JANUVIA [Concomitant]
     Active Substance: SITAGLIPTIN PHOSPHATE
  11. IBUPROFEN SODIUM. [Concomitant]
     Active Substance: IBUPROFEN SODIUM
  12. ABILIFY [Concomitant]
     Active Substance: ARIPIPRAZOLE
  13. ORTHO EVRA [Concomitant]
     Active Substance: ETHINYL ESTRADIOL\NORELGESTROMIN
  14. PROMETHAZINE [Concomitant]
     Active Substance: PROMETHAZINE HYDROCHLORIDE
  15. STARLIX [Concomitant]
     Active Substance: NATEGLINIDE
  16. XYREM [Suspect]
     Active Substance: SODIUM OXYBATE
     Dosage: 4.5 G, BID
     Route: 048
     Dates: start: 201505
  17. LITHIUM CARBONATE. [Concomitant]
     Active Substance: LITHIUM CARBONATE
  18. LOVASTATIN. [Concomitant]
     Active Substance: LOVASTATIN
  19. LAMICTAL [Concomitant]
     Active Substance: LAMOTRIGINE
  20. TRILIPIX [Concomitant]
     Active Substance: FENOFIBRIC ACID
  21. RISPERIDONE. [Suspect]
     Active Substance: RISPERIDONE
     Indication: PRODUCT USED FOR UNKNOWN INDICATION
  22. ASPIRIN 81 [Concomitant]
     Active Substance: ASPIRIN
  23. BENAZEPRIL HCL [Concomitant]
     Active Substance: BENAZEPRIL HYDROCHLORIDE
  24. CITALOPRAM HYDROBROMIDE. [Concomitant]
     Active Substance: CITALOPRAM HYDROBROMIDE
  25. FISH OIL OMEGA 3 [Concomitant]
     Active Substance: FISH OIL
  26. NEURONTIN [Concomitant]
     Active Substance: GABAPENTIN
  27. VERAPAMIL [Concomitant]
     Active Substance: VERAPAMIL HYDROCHLORIDE
  28. AMBIEN [Concomitant]
     Active Substance: ZOLPIDEM TARTRATE

REACTIONS (5)
  - Drug interaction [Unknown]
  - Blood pressure decreased [Unknown]
  - Hypoglycaemia [Recovering/Resolving]
  - Diabetes mellitus [Unknown]
  - Renal disorder [Unknown]
